FAERS Safety Report 6587649-5 (Version None)
Quarter: 2010Q1

REPORT INFORMATION
  Report Type: 
  Country: None (occurrence: None)
  Receive Date: 20100218
  Receipt Date: 20100208
  Transmission Date: 20100710
  Serious: Yes (Hospitalization, Other)
  Sender: FDA-Public Use
  Company Number: CA-ELI_LILLY_AND_COMPANY-CA201002002744

PATIENT
  Age: 77 Year
  Sex: Female

DRUGS (12)
  1. FORTEO [Suspect]
     Indication: OSTEOPOROSIS
     Dosage: 20 UG, DAILY (1/D)
     Route: 058
     Dates: start: 20090709, end: 20100206
  2. METFORMIN HYDROCHLORIDE [Concomitant]
     Dosage: UNK, UNKNOWN
     Route: 065
  3. PREDNISONE [Concomitant]
     Dosage: UNK, UNKNOWN
     Route: 065
  4. METHOTREXATE [Concomitant]
     Dosage: UNK, UNKNOWN
     Route: 065
  5. TRIAZIDE [Concomitant]
     Dosage: UNK, UNKNOWN
     Route: 065
  6. VASOTEC [Concomitant]
     Dosage: UNK, UNKNOWN
     Route: 065
  7. OMEPRAZOL [Concomitant]
     Dosage: UNK, UNKNOWN
     Route: 065
  8. VITAMIN B-12 [Concomitant]
     Dosage: UNK, UNKNOWN
     Route: 065
  9. FOLIC ACID [Concomitant]
     Dosage: UNK, UNKNOWN
     Route: 065
  10. CALCIUM [Concomitant]
     Dosage: UNK, UNKNOWN
     Route: 065
  11. VITAMIN D [Concomitant]
     Dosage: UNK, UNKNOWN
     Route: 065
  12. GLICLAZIDE [Concomitant]

REACTIONS (4)
  - ASTHENIA [None]
  - BLOOD CALCIUM INCREASED [None]
  - DECREASED ACTIVITY [None]
  - PNEUMONIA [None]
